FAERS Safety Report 22673190 (Version 3)
Quarter: 2024Q2

REPORT INFORMATION
  Report Type: Report from Study
  Country: MX (occurrence: MX)
  Receive Date: 20230705
  Receipt Date: 20240521
  Transmission Date: 20240716
  Serious: Yes (Other)
  Sender: FDA-Public Use
  Company Number: MX-002147023-NVSC2023MX150300

PATIENT
  Sex: Male
  Weight: 81 kg

DRUGS (6)
  1. TEGRETOL [Suspect]
     Active Substance: CARBAMAZEPINE
     Indication: Cerebral cyst
     Dosage: 1.5 DOSAGE FORM, TID (STOP DATE: 3 YEARS AGO)
     Route: 048
     Dates: start: 2018
  2. TEGRETOL [Suspect]
     Active Substance: CARBAMAZEPINE
     Dosage: 1 DOSAGE FORM, TID (START DATE: 3 YEARS AGO)
     Route: 048
  3. TEGRETOL [Suspect]
     Active Substance: CARBAMAZEPINE
     Dosage: 1 DOSAGE FORM OF  200 MG
     Route: 065
  4. TEGRETOL [Suspect]
     Active Substance: CARBAMAZEPINE
     Indication: Epilepsy
     Dosage: 200 MG, UNKNOWN
     Route: 048
     Dates: start: 2016, end: 2017
  5. LEVETIRACETAM [Suspect]
     Active Substance: LEVETIRACETAM
     Indication: Product used for unknown indication
     Dosage: UNK
     Route: 065
  6. CARBAMAZEPINE [Concomitant]
     Active Substance: CARBAMAZEPINE
     Indication: Epilepsy
     Dosage: UNK
     Route: 065

REACTIONS (11)
  - Seizure [Recovered/Resolved]
  - Syncope [Unknown]
  - Epilepsy [Unknown]
  - Dizziness [Unknown]
  - Hypoacusis [Unknown]
  - Ageusia [Unknown]
  - Malaise [Unknown]
  - COVID-19 [Recovered/Resolved]
  - Off label use [Unknown]
  - Product use in unapproved indication [Unknown]
  - Product availability issue [Unknown]

NARRATIVE: CASE EVENT DATE: 20180101
